FAERS Safety Report 19194004 (Version 1)
Quarter: 2021Q2

REPORT INFORMATION
  Report Type: Spontaneous
  Country: DE (occurrence: DE)
  Receive Date: 20210429
  Receipt Date: 20210429
  Transmission Date: 20210717
  Serious: Yes (Other)
  Sender: FDA-Public Use
  Company Number: DE-TEVA-2021-DE-1903651

PATIENT
  Age: 60 Year
  Sex: Female

DRUGS (4)
  1. DALMADORM [Concomitant]
     Active Substance: FLURAZEPAM HYDROCHLORIDE
     Dosage: TAKEN FOR 2 DAYS
     Route: 048
  2. QUETIAPIN ABZ 200 MG FILMTABLETTEN [Suspect]
     Active Substance: QUETIAPINE
     Indication: MENTAL DISORDER
     Dosage: 200 MILLIGRAM DAILY; INTAKE AT 10 PM
     Route: 048
     Dates: start: 2008
  3. ROPINIROL [Suspect]
     Active Substance: ROPINIROLE
     Indication: RESTLESS LEGS SYNDROME
     Dosage: 1.5 MILLIGRAM DAILY; 0.5 MG AT 6 PM, 2X 0.5 MG AT 10 PM
     Route: 048
  4. QUETIAPIN ABZ 200 MG FILMTABLETTEN [Suspect]
     Active Substance: QUETIAPINE
     Indication: INSOMNIA

REACTIONS (3)
  - Insomnia [Unknown]
  - Hallucination [Not Recovered/Not Resolved]
  - Hallucination, auditory [Not Recovered/Not Resolved]

NARRATIVE: CASE EVENT DATE: 20210409
